FAERS Safety Report 24791158 (Version 1)
Quarter: 2024Q4

REPORT INFORMATION
  Report Type: Spontaneous
  Country: US (occurrence: US)
  Receive Date: 20241230
  Receipt Date: 20241230
  Transmission Date: 20250115
  Serious: No
  Sender: CIPLA
  Company Number: US-CIPLA LTD.-2024US12989

PATIENT

DRUGS (2)
  1. BUDESONIDE [Suspect]
     Active Substance: BUDESONIDE
     Indication: Product used for unknown indication
     Dosage: 0.5 ML/2ML, BID (10 DAYS EVERY 12 HOURS)
     Route: 065
     Dates: start: 20241106
  2. ALBUTEROL [Concomitant]
     Active Substance: ALBUTEROL
     Indication: Product used for unknown indication
     Dosage: UNK
     Route: 065

REACTIONS (3)
  - Poor quality product administered [Unknown]
  - Liquid product physical issue [Unknown]
  - Product contamination [Unknown]

NARRATIVE: CASE EVENT DATE: 20241106
